FAERS Safety Report 20971003 (Version 11)
Quarter: 2024Q3

REPORT INFORMATION
  Report Type: Spontaneous
  Country: US (occurrence: US)
  Receive Date: 20220616
  Receipt Date: 20240718
  Transmission Date: 20241017
  Serious: Yes (Other)
  Sender: SANOFI AVENTIS
  Company Number: US-SANOFI-01137978

PATIENT
  Age: 76 Year
  Sex: Male

DRUGS (4)
  1. LANTUS SOLOSTAR [Suspect]
     Active Substance: INSULIN GLARGINE
     Indication: Type 2 diabetes mellitus
     Dosage: 18-20 UNITS, QD
  2. LANTUS SOLOSTAR [Suspect]
     Active Substance: INSULIN GLARGINE
     Dosage: 16 TO 18 UNITS IF THEIR BLOOD SUGAR IS MORE THAN 180, 16 UNITS IF THEIR BLOOD SUGAR IS BELOW 180
  3. LANTUS SOLOSTAR [Suspect]
     Active Substance: INSULIN GLARGINE
     Dosage: 17-19 UNITS QD
  4. HUMALOG [Concomitant]
     Active Substance: INSULIN LISPRO
     Indication: Type 2 diabetes mellitus
     Dosage: UNK, TID

REACTIONS (7)
  - Neoplasm malignant [Unknown]
  - Single functional kidney [Unknown]
  - Skin swelling [Unknown]
  - Blood glucose increased [Not Recovered/Not Resolved]
  - Product dispensing error [Unknown]
  - Drug ineffective [Not Recovered/Not Resolved]
  - Product storage error [Unknown]
